FAERS Safety Report 13596934 (Version 5)
Quarter: 2018Q1

REPORT INFORMATION
  Report Type: Spontaneous
  Country: FR (occurrence: FR)
  Receive Date: 20170531
  Receipt Date: 20180302
  Transmission Date: 20180508
  Serious: Yes (Hospitalization)
  Sender: FDA-Public Use
  Company Number: FR-AUROBINDO-AUR-APL-2017-34638

PATIENT
  Age: 82 Year
  Sex: Male
  Weight: 78 kg

DRUGS (15)
  1. BACTRIM [Suspect]
     Active Substance: SULFAMETHOXAZOLE\TRIMETHOPRIM
     Indication: PROPHYLAXIS
     Dosage: 342, 8571 MG (800 MG, THREE TIMES WEEKLY)
     Route: 048
     Dates: start: 20170106, end: 20170222
  2. VASELINE                           /00473501/ [Concomitant]
     Active Substance: PARAFFIN
     Dosage: ()
  3. MABTHERA [Suspect]
     Active Substance: RITUXIMAB
     Indication: MANTLE CELL LYMPHOMA
     Dosage: SECOND CYCLE ON 31-JAN-2017
     Route: 042
     Dates: start: 20170102, end: 20170131
  4. NEOMYCIN. [Concomitant]
     Active Substance: NEOMYCIN
     Dosage: ()
  5. ACYCLOVIR                          /00587301/ [Concomitant]
     Active Substance: ACYCLOVIR
     Dosage: ()
  6. VALACYCLOVIR [Suspect]
     Active Substance: VALACYCLOVIR HYDROCHLORIDE
     Indication: PRODUCT USED FOR UNKNOWN INDICATION
     Dosage: 500 MG, ONCE A DAY
     Route: 048
     Dates: start: 20170106, end: 20170222
  7. BENDAMUSTINE ACCORD [Suspect]
     Active Substance: BENDAMUSTINE
     Indication: PRODUCT USED FOR UNKNOWN INDICATION
     Dosage: 180 MG/ M? (90 MG/ M?, 2 IN 1 CYCLE)
     Route: 042
     Dates: start: 20170103, end: 20170131
  8. PRIMPERAN [Concomitant]
     Active Substance: METOCLOPRAMIDE HYDROCHLORIDE
     Indication: VOMITING
     Dosage: ()
  9. MABTHERA [Suspect]
     Active Substance: RITUXIMAB
     Indication: PRODUCT USED FOR UNKNOWN INDICATION
     Dosage: 17, 8571 MG/ M? (375 MG/ M?, ONCE EVERY 3 WEEKS)
     Route: 042
     Dates: start: 20170103, end: 20170131
  10. PRIMPERAN [Concomitant]
     Active Substance: METOCLOPRAMIDE HYDROCHLORIDE
     Indication: PRODUCT USED FOR UNKNOWN INDICATION
     Route: 065
  11. MOVICOL [Concomitant]
     Active Substance: POLYETHYLENE GLYCOL 3350\POTASSIUM CHLORIDE\SODIUM BICARBONATE\SODIUM CHLORIDE
     Indication: PRODUCT USED FOR UNKNOWN INDICATION
     Route: 065
  12. VELCADE [Suspect]
     Active Substance: BORTEZOMIB
     Indication: PRODUCT USED FOR UNKNOWN INDICATION
     Dosage: 5, 2 MG/ M? (1, 3 MG/ M?, 4 IN 1 CYCLE)
     Route: 058
     Dates: start: 20170103, end: 20170131
  13. DEXAMETHASONE PHOSPHATE SODIUM [Suspect]
     Active Substance: DEXAMETHASONE SODIUM PHOSPHATE
     Indication: PRODUCT USED FOR UNKNOWN INDICATION
     Dosage: 0, 1905 MG/ KG (4 MG/ KG, 1 IN 21 DAYS)
     Route: 065
     Dates: start: 20170103, end: 20170131
  14. VELCADE [Suspect]
     Active Substance: BORTEZOMIB
     Indication: MANTLE CELL LYMPHOMA
     Dosage: SECOND CYCLE ON 31-JAN-2017 ; CYCLICAL
     Route: 058
     Dates: start: 20170102, end: 20170131
  15. PROPYLENE GLYCOL [Concomitant]
     Active Substance: PROPYLENE GLYCOL
     Dosage: ()

REACTIONS (1)
  - Dermatitis exfoliative generalised [Not Recovered/Not Resolved]

NARRATIVE: CASE EVENT DATE: 20170217
